FAERS Safety Report 13457492 (Version 1)
Quarter: 2017Q2

REPORT INFORMATION
  Report Type: Spontaneous
  Country: US (occurrence: US)
  Receive Date: 20170419
  Receipt Date: 20170419
  Transmission Date: 20170830
  Serious: Yes (Disabling)
  Sender: FDA-Public Use
  Company Number: None

PATIENT
  Age: 36 Year
  Sex: Female
  Weight: 65.25 kg

DRUGS (1)
  1. CIPROFLOXACIN. [Suspect]
     Active Substance: CIPROFLOXACIN
     Indication: URINARY TRACT INFECTION
     Route: 048
     Dates: start: 20150916, end: 20150926

REACTIONS (13)
  - Pain [None]
  - Fatigue [None]
  - Nausea [None]
  - Urticaria [None]
  - Impaired work ability [None]
  - Loss of personal independence in daily activities [None]
  - Eye disorder [None]
  - Toxicity to various agents [None]
  - Myalgia [None]
  - Skin disorder [None]
  - Malaise [None]
  - Feeling abnormal [None]
  - Muscle twitching [None]

NARRATIVE: CASE EVENT DATE: 20150916
